FAERS Safety Report 26098608 (Version 1)
Quarter: 2025Q4

REPORT INFORMATION
  Report Type: Report from Study
  Country: US (occurrence: US)
  Receive Date: 20251127
  Receipt Date: 20251127
  Transmission Date: 20260118
  Serious: Yes (Other)
  Sender: ABBVIE
  Company Number: US-ABBVIE-6542599

PATIENT
  Age: 81 Year
  Sex: Female
  Weight: 55.338 kg

DRUGS (1)
  1. CREON [Suspect]
     Active Substance: PANCRELIPASE AMYLASE\PANCRELIPASE LIPASE\PANCRELIPASE PROTEASE
     Indication: Pancreatic failure
     Dosage: 2 CAPS EACH MEAL 1 CAP EACH SNACK
     Route: 048
     Dates: start: 202403

REACTIONS (2)
  - Pancreatic carcinoma metastatic [Unknown]
  - Osteoporosis [Not Recovered/Not Resolved]

NARRATIVE: CASE EVENT DATE: 20250401
